FAERS Safety Report 6938764-5 (Version None)
Quarter: 2010Q3

REPORT INFORMATION
  Report Type: 
  Country: None (occurrence: None)
  Receive Date: 20100824
  Receipt Date: 20100819
  Transmission Date: 20110219
  Serious: Yes (Life-Threatening)
  Sender: FDA-Public Use
  Company Number: GB-ROCHE-450943

PATIENT
  Sex: Female
  Weight: 51 kg

DRUGS (8)
  1. CAPECITABINE [Suspect]
     Dosage: GIVEN TWICE DAILY FOR 2 WEEKS OUT OF EVERY THREE WEEK CYCLE
     Route: 048
     Dates: start: 20060210
  2. CAPECITABINE [Suspect]
     Dosage: GIVEN TWICE DAILY FOR 2 WEEKS OUT OF EVERY THREE WEEK CYCLE
     Route: 048
     Dates: start: 20060528, end: 20060528
  3. BEVACIZUMAB [Suspect]
     Dosage: FORM: INFUSION; GIVEN  ON DAY ONE OF EVERY THREE WEEK CYCLE
     Route: 042
     Dates: start: 20060210
  4. OXALIPLATIN [Suspect]
     Dosage: FORM: INFUSION; GIVEN ON DAY ONE OF EVERY THREE WEEK CYCLE
     Route: 042
     Dates: start: 20060210, end: 20061221
  5. DOMPERIDONE [Concomitant]
     Route: 048
     Dates: start: 20060211
  6. ONDANSETRON [Concomitant]
     Route: 048
     Dates: start: 20060211
  7. DEXAMETHASONE [Concomitant]
     Route: 048
     Dates: start: 20060211
  8. ATENOLOL [Concomitant]

REACTIONS (1)
  - OVARIAN EPITHELIAL CANCER [None]
